FAERS Safety Report 16787975 (Version 1)
Quarter: 2019Q3

REPORT INFORMATION
  Report Type: Report from Study
  Country: US (occurrence: US)
  Receive Date: 20190909
  Receipt Date: 20190909
  Transmission Date: 20191005
  Serious: Yes (Hospitalization, Other)
  Sender: FDA-Public Use
  Company Number: US-GILEAD-2019-0427206

PATIENT
  Age: 76 Year
  Sex: Male

DRUGS (1)
  1. AXICABTAGENE CILOLEUCEL [Suspect]
     Active Substance: AXICABTAGENE CILOLEUCEL
     Indication: NON-HODGKIN^S LYMPHOMA
     Dosage: UNK
     Route: 065
     Dates: start: 201805, end: 201805

REACTIONS (14)
  - Blood pressure abnormal [Unknown]
  - Visual impairment [Unknown]
  - Swelling face [Unknown]
  - Dysgraphia [Unknown]
  - Hypoacusis [Unknown]
  - Speech disorder [Unknown]
  - Fatigue [Unknown]
  - Confusional state [Unknown]
  - Herpes zoster [Unknown]
  - Bursitis [Not Recovered/Not Resolved]
  - Dysphagia [Not Recovered/Not Resolved]
  - Pneumonia [Unknown]
  - Tremor [Unknown]
  - Pyrexia [Unknown]

NARRATIVE: CASE EVENT DATE: 201805
